FAERS Safety Report 12004941 (Version 1)
Quarter: 2016Q1

REPORT INFORMATION
  Report Type: Spontaneous
  Country: FR (occurrence: FR)
  Receive Date: 20160204
  Receipt Date: 20160204
  Transmission Date: 20160526
  Serious: Yes (Hospitalization)
  Sender: FDA-Public Use
  Company Number: FR-JNJFOC-20160123310

PATIENT
  Age: 42 Year
  Sex: Male

DRUGS (5)
  1. APRANAX [Concomitant]
     Active Substance: NAPROXEN
     Indication: ENTEROPATHIC SPONDYLITIS
     Route: 048
     Dates: start: 201411, end: 20150417
  2. KLIPAL [Concomitant]
     Active Substance: ACETAMINOPHEN\CODEINE PHOSPHATE
     Indication: ENTEROPATHIC SPONDYLITIS
     Dosage: 600MG/50 MG
     Route: 048
  3. SIMPONI [Suspect]
     Active Substance: GOLIMUMAB
     Indication: ENTEROPATHIC SPONDYLITIS
     Dosage: (0.0333 DF PER DAY)
     Route: 058
     Dates: start: 20140930, end: 20150327
  4. APRANAX [Concomitant]
     Active Substance: NAPROXEN
     Indication: ENTEROPATHIC SPONDYLITIS
     Route: 048
     Dates: start: 20150604
  5. OMEPRAZOLE. [Concomitant]
     Active Substance: OMEPRAZOLE
     Route: 048
     Dates: start: 20150604

REACTIONS (4)
  - Blood creatine phosphokinase increased [Recovered/Resolved]
  - Myalgia [Recovered/Resolved]
  - Product use issue [Unknown]
  - Off label use [Unknown]

NARRATIVE: CASE EVENT DATE: 20141218
